FAERS Safety Report 20020803 (Version 1)
Quarter: 2021Q4

REPORT INFORMATION
  Report Type: Spontaneous
  Country: CN (occurrence: CN)
  Receive Date: 20211101
  Receipt Date: 20211101
  Transmission Date: 20220304
  Serious: Yes (Hospitalization)
  Sender: FDA-Public Use
  Company Number: CN-SA-2021SA357938

PATIENT
  Age: 67 Year
  Sex: Male

DRUGS (10)
  1. GLIMEPIRIDE [Suspect]
     Active Substance: GLIMEPIRIDE
     Indication: Diabetes mellitus
     Dosage: UNK
     Route: 048
  2. METFORMIN HYDROCHLORIDE [Suspect]
     Active Substance: METFORMIN HYDROCHLORIDE
     Indication: Diabetes mellitus
     Dosage: UNK
     Route: 065
  3. ACARBOSE [Suspect]
     Active Substance: ACARBOSE
     Indication: Diabetes mellitus
     Dosage: UNK
     Route: 048
  4. ACARBOSE [Suspect]
     Active Substance: ACARBOSE
     Dosage: UNK
     Route: 048
  5. INSULIN GLARGINE [Suspect]
     Active Substance: INSULIN GLARGINE
     Indication: Diabetes mellitus
     Dosage: UNK
     Route: 042
  6. PIOGLITAZONE [Suspect]
     Active Substance: PIOGLITAZONE
     Indication: Diabetes mellitus
     Dosage: UNK
     Route: 048
  7. INSULIN LISPRO [Suspect]
     Active Substance: INSULIN LISPRO
     Indication: Type 2 diabetes mellitus
     Dosage: 8 U
     Route: 058
  8. INSULIN ASPART [Suspect]
     Active Substance: INSULIN ASPART
     Indication: Diabetes mellitus
  9. INSULIN DETEMIR [Suspect]
     Active Substance: INSULIN DETEMIR
     Indication: Type 2 diabetes mellitus
     Dosage: 6 U
     Route: 058
  10. HUMALOG MIX75/25 [Concomitant]
     Active Substance: INSULIN LISPRO
     Indication: Diabetes mellitus

REACTIONS (12)
  - Polyuria [Recovering/Resolving]
  - Dry mouth [Recovering/Resolving]
  - Polydipsia [Recovering/Resolving]
  - Condition aggravated [Recovering/Resolving]
  - Drug hypersensitivity [Recovered/Resolved]
  - Urticaria [Recovered/Resolved]
  - Pruritus [Recovered/Resolved]
  - Rash [Recovered/Resolved]
  - Skin mass [Recovered/Resolved]
  - Injection site nodule [Recovered/Resolved]
  - Disease recurrence [Recovered/Resolved]
  - Therapeutic response decreased [Unknown]

NARRATIVE: CASE EVENT DATE: 20180101
